FAERS Safety Report 9356625 (Version 1)
Quarter: 2013Q2

REPORT INFORMATION
  Report Type: Spontaneous
  Country: US (occurrence: US)
  Receive Date: 20130619
  Receipt Date: 20130619
  Transmission Date: 20140414
  Serious: No
  Sender: FDA-Public Use
  Company Number: US-009507513-1306USA007328

PATIENT
  Age: 29 Year
  Sex: Female

DRUGS (2)
  1. CLARITIN-D-12 [Suspect]
     Indication: SEASONAL ALLERGY
     Dosage: 5 MG, BID
     Route: 048
  2. CLARITIN-D-12 [Suspect]
     Dosage: 15 MG, QD
     Route: 048
     Dates: start: 20130617

REACTIONS (1)
  - Accidental overdose [Unknown]
